FAERS Safety Report 5843260-2 (Version None)
Quarter: 2008Q3

REPORT INFORMATION
  Report Type: 
  Country: None (occurrence: None)
  Receive Date: 20080813
  Receipt Date: 20080804
  Transmission Date: 20090109
  Serious: Yes (Other)
  Sender: FDA-Public Use
  Company Number: US-JNJFOC-20080801269

PATIENT
  Age: 43 Year
  Sex: Female
  Weight: 78.93 kg

DRUGS (2)
  1. LEVAQUIN [Suspect]
     Indication: SINUSITIS
     Route: 048
  2. SYNTHROID [Concomitant]
     Indication: HYPOTHYROIDISM
     Dosage: 12MCG
     Route: 065

REACTIONS (3)
  - DEHYDRATION [None]
  - FATIGUE [None]
  - VOMITING [None]
